FAERS Safety Report 7454909-5 (Version None)
Quarter: 2011Q2

REPORT INFORMATION
  Report Type: 
  Country: None (occurrence: None)
  Receive Date: 20110503
  Receipt Date: 20100517
  Transmission Date: 20111010
  Serious: No
  Sender: FDA-Public Use
  Company Number: US-BAYER-201022781NA

PATIENT
  Sex: Female

DRUGS (3)
  1. YAZ [Suspect]
     Indication: MUSCLE SPASMS
  2. YAZ [Suspect]
     Indication: CONTRACEPTION
  3. YAZ [Suspect]
     Indication: ACNE

REACTIONS (1)
  - NO ADVERSE EVENT [None]
